FAERS Safety Report 7172039-7 (Version None)
Quarter: 2010Q4

REPORT INFORMATION
  Report Type: 
  Country: None (occurrence: None)
  Receive Date: 20101217
  Receipt Date: 20100130
  Transmission Date: 20110411
  Serious: No
  Sender: FDA-Public Use
  Company Number: US-AMGEN-KDL389732

PATIENT

DRUGS (1)
  1. ENBREL [Suspect]
     Indication: ANKYLOSING SPONDYLITIS
     Dosage: 50 MG, QWK
     Route: 058
     Dates: start: 20100114

REACTIONS (5)
  - DIZZINESS [None]
  - EYE PAIN [None]
  - FATIGUE [None]
  - OCULAR HYPERAEMIA [None]
  - PHOTOPHOBIA [None]
